FAERS Safety Report 5276897-2 (Version None)
Quarter: 2007Q1

REPORT INFORMATION
  Report Type: 
  Country: None (occurrence: None)
  Receive Date: 20070327
  Receipt Date: 20070316
  Transmission Date: 20070707
  Serious: Yes (Hospitalization, Other)
  Sender: FDA-Public Use
  Company Number: PHEH2007US03186

PATIENT
  Age: 57 Year
  Sex: Female
  Weight: 70.294 kg

DRUGS (6)
  1. ESTRADERM [Suspect]
     Indication: MENOPAUSAL SYMPTOMS
     Route: 061
     Dates: start: 19900101
  2. BENADRYL [Concomitant]
     Dosage: UNK, PRN
  3. PREMARIN [Suspect]
     Indication: MENOPAUSAL SYMPTOMS
     Dates: start: 19750101, end: 19940101
  4. OGEN [Suspect]
     Indication: MENOPAUSAL SYMPTOMS
     Dates: start: 19890101
  5. ESTRACE [Suspect]
     Indication: MENOPAUSAL SYMPTOMS
     Dates: start: 19900101
  6. PREMPRO [Suspect]
     Indication: MENOPAUSAL SYMPTOMS
     Dosage: UNK, UNK
     Dates: start: 19750101, end: 19910101

REACTIONS (36)
  - ADRENAL INSUFFICIENCY [None]
  - ANAEMIA [None]
  - ANXIETY [None]
  - ARRHYTHMIA SUPRAVENTRICULAR [None]
  - ASTHENIA [None]
  - ATRIAL FIBRILLATION [None]
  - BONE DENSITY DECREASED [None]
  - BREAST CANCER IN SITU [None]
  - CHILLS [None]
  - CHOLECYSTECTOMY [None]
  - CHOLECYSTITIS [None]
  - CHRONIC SINUSITIS [None]
  - DIABETES MELLITUS [None]
  - DIVERTICULUM [None]
  - DIZZINESS [None]
  - FATIGUE [None]
  - GASTROOESOPHAGEAL REFLUX DISEASE [None]
  - GLUCOSE TOLERANCE IMPAIRED [None]
  - HAEMATURIA [None]
  - HIATUS HERNIA [None]
  - HYPERVENTILATION [None]
  - HYPOGLYCAEMIA [None]
  - HYPOTENSION [None]
  - IRRITABLE BOWEL SYNDROME [None]
  - MACULAR DEGENERATION [None]
  - MAMMOGRAM ABNORMAL [None]
  - NERVE INJURY [None]
  - OESOPHAGEAL DILATATION [None]
  - OESTROGEN RECEPTOR ASSAY POSITIVE [None]
  - OTITIS MEDIA [None]
  - PROGESTERONE RECEPTOR ASSAY POSITIVE [None]
  - RENAL STONE REMOVAL [None]
  - SOMATISATION DISORDER [None]
  - SYNCOPE [None]
  - VENTRICULAR EXTRASYSTOLES [None]
  - WEIGHT INCREASED [None]
